FAERS Safety Report 8618496-8 (Version None)
Quarter: 2012Q3

REPORT INFORMATION
  Report Type: 
  Country: None (occurrence: None)
  Receive Date: 20120824
  Receipt Date: 20120813
  Transmission Date: 20120928
  Serious: Yes (Other)
  Sender: FDA-Public Use
  Company Number: US-ACCORD-014458

PATIENT
  Weight: 1.41 kg

DRUGS (3)
  1. CYTOXAN [Suspect]
     Indication: BREAST CANCER STAGE II
     Route: 064
  2. PACLITAXEL [Suspect]
     Indication: BREAST CANCER STAGE II
     Route: 064
  3. ADRIAMYCIN PFS [Suspect]
     Indication: BREAST CANCER STAGE II
     Route: 064

REACTIONS (6)
  - PREMATURE BABY [None]
  - APNOEA [None]
  - CONSTIPATION [None]
  - GASTROOESOPHAGEAL REFLUX DISEASE [None]
  - NEONATAL RESPIRATORY DISTRESS SYNDROME [None]
  - SELECTIVE IGA IMMUNODEFICIENCY [None]
